FAERS Safety Report 14145971 (Version 7)
Quarter: 2019Q4

REPORT INFORMATION
  Report Type: Report from Study
  Country: US (occurrence: US)
  Receive Date: 20171031
  Receipt Date: 20191204
  Transmission Date: 20200122
  Serious: No
  Sender: FDA-Public Use
  Company Number: PHEH2017US035143

PATIENT
  Age: 58 Year
  Sex: Female

DRUGS (3)
  1. ENTRESTO [Suspect]
     Active Substance: SACUBITRIL\VALSARTAN
     Dosage: 1 DF (SACUBITRIL 49 MG, VALSARTAN 51 MG), UNK
     Route: 065
  2. ENTRESTO [Suspect]
     Active Substance: SACUBITRIL\VALSARTAN
     Indication: CARDIAC FAILURE
     Dosage: 1 DF (SACUBITRIL 24 MG, VALSARTAN 26 MG), UNK
     Route: 065
     Dates: start: 20170406
  3. ENTRESTO [Suspect]
     Active Substance: SACUBITRIL\VALSARTAN
     Dosage: 1 DF (SACUBITRIL 97 MG, VALSARTAN 103 MG), BID
     Route: 048
     Dates: start: 201709

REACTIONS (10)
  - Dyspnoea [Unknown]
  - Fatigue [Recovering/Resolving]
  - Gastrointestinal disorder [Unknown]
  - Nasopharyngitis [Unknown]
  - Bradyphrenia [Unknown]
  - Hypotension [Unknown]
  - Weight decreased [Recovering/Resolving]
  - Insomnia [Unknown]
  - Heart rate irregular [Unknown]
  - Gastritis [Recovering/Resolving]

NARRATIVE: CASE EVENT DATE: 20170406
